FAERS Safety Report 14850276 (Version 1)
Quarter: 2018Q2

REPORT INFORMATION
  Report Type: Spontaneous
  Country: BR (occurrence: BR)
  Receive Date: 20180505
  Receipt Date: 20180505
  Transmission Date: 20180711
  Serious: Yes (Other)
  Sender: FDA-Public Use
  Company Number: BR-TEVA-2018-BR-888317

PATIENT
  Sex: Male

DRUGS (1)
  1. AZILECT [Suspect]
     Active Substance: RASAGILINE MESYLATE
     Route: 065

REACTIONS (2)
  - Off label use [Unknown]
  - Surgery [Unknown]
